FAERS Safety Report 20218904 (Version 1)
Quarter: 2021Q4

REPORT INFORMATION
  Report Type: Spontaneous
  Country: US (occurrence: US)
  Receive Date: 20211222
  Receipt Date: 20211222
  Transmission Date: 20220303
  Serious: No
  Sender: FDA-Public Use
  Company Number: US-BioHaven Pharmaceuticals-2021BHV000851

PATIENT
  Age: 59 Year
  Sex: Female
  Weight: 52.210 kg

DRUGS (6)
  1. NURTEC ODT [Suspect]
     Active Substance: RIMEGEPANT SULFATE
     Indication: Prophylaxis
     Dosage: OVER THE LAST 2 MONTHS SHE HAS BEEN TAKING IT EVERY OTHER DAY BUT ORIGINALLY SHE WAS TAKING IT PRN.
     Route: 048
     Dates: start: 202106
  2. NURTEC ODT [Suspect]
     Active Substance: RIMEGEPANT SULFATE
     Dosage: OVER THE LAST 2 MONTHS SHE HAS BEEN TAKING IT EVERY OTHER DAY BUT ORIGINALLY SHE WAS TAKING IT PRN.
     Route: 048
     Dates: start: 202109
  3. TRAZODONE [Suspect]
     Active Substance: TRAZODONE HYDROCHLORIDE
     Indication: Sleep disorder
     Route: 065
  4. ZALEPLON [Concomitant]
     Active Substance: ZALEPLON
     Indication: Sleep disorder therapy
     Route: 065
  5. TYLENOL [Concomitant]
     Active Substance: ACETAMINOPHEN
     Indication: Product used for unknown indication
     Dosage: OCCASIONAL
     Route: 065
  6. PERCOCET [Concomitant]
     Active Substance: ACETAMINOPHEN\OXYCODONE HYDROCHLORIDE
     Indication: Product used for unknown indication
     Dosage: OCCASIONAL
     Route: 065

REACTIONS (3)
  - Drug interaction [Recovered/Resolved]
  - Headache [Recovered/Resolved]
  - Drug ineffective [Recovered/Resolved]
